FAERS Safety Report 25788364 (Version 2)
Quarter: 2025Q4

REPORT INFORMATION
  Report Type: Report from Study
  Country: JP (occurrence: JP)
  Receive Date: 20250910
  Receipt Date: 20251013
  Transmission Date: 20260118
  Serious: Yes (Death)
  Sender: RIGEL PHARMACEUTICALS
  Company Number: JP-KISSEI-TL20250155

PATIENT
  Age: 70 Year
  Sex: Male
  Weight: 68.8 kg

DRUGS (3)
  1. FOSTAMATINIB DISODIUM [Suspect]
     Active Substance: FOSTAMATINIB DISODIUM
     Indication: Immune thrombocytopenia
     Dosage: 100MG,BID
     Route: 048
     Dates: start: 20240613, end: 20240729
  2. PREDNISOLONE [Concomitant]
     Active Substance: PREDNISOLONE
     Indication: Immune thrombocytopenia
     Dosage: 40 MG, QD
     Route: 048
     Dates: end: 20240729
  3. ELTROMBOPAG OLAMINE [Concomitant]
     Active Substance: ELTROMBOPAG OLAMINE
     Indication: Immune thrombocytopenia
     Dosage: 50 MG, QD
     Route: 048
     Dates: end: 20240729

REACTIONS (2)
  - Pneumonia [Fatal]
  - Adverse event [Unknown]

NARRATIVE: CASE EVENT DATE: 20240729
